FAERS Safety Report 15673780 (Version 2)
Quarter: 2020Q3

REPORT INFORMATION
  Report Type: Report from Study
  Country: FR (occurrence: FR)
  Receive Date: 20181129
  Receipt Date: 20200805
  Transmission Date: 20201102
  Serious: Yes (Hospitalization, Other)
  Sender: FDA-Public Use
  Company Number: FR-SHIRE-FR201828929

PATIENT

DRUGS (8)
  1. TEDUGLUTIDE [Suspect]
     Active Substance: TEDUGLUTIDE
     Indication: SHORT-BOWEL SYNDROME
     Dosage: 3.6 MILLIGRAM (0.05 MILLIGRAM/KILOGRAM), 1X/DAY:QD
     Route: 065
     Dates: start: 20171206
  2. FLAGYL [Concomitant]
     Active Substance: METRONIDAZOLE\METRONIDAZOLE HYDROCHLORIDE
     Indication: SEPSIS
  3. CLAFORAN [Concomitant]
     Active Substance: CEFOTAXIME SODIUM
     Indication: SEPSIS
  4. TEDUGLUTIDE [Suspect]
     Active Substance: TEDUGLUTIDE
     Indication: SHORT-BOWEL SYNDROME
     Dosage: 3.6 MILLIGRAM (0.05 MILLIGRAM/KILOGRAM), 1X/DAY:QD
     Route: 065
     Dates: start: 20171206
  5. INNOHEP [Concomitant]
     Active Substance: TINZAPARIN SODIUM
     Indication: THROMBOSIS
  6. TEDUGLUTIDE [Suspect]
     Active Substance: TEDUGLUTIDE
     Indication: SHORT-BOWEL SYNDROME
     Dosage: 3.6 MILLIGRAM (0.05 MILLIGRAM/KILOGRAM), 1X/DAY:QD
     Route: 065
     Dates: start: 20171206
  7. AMIKLIN [Concomitant]
     Active Substance: AMIKACIN SULFATE
     Indication: SEPSIS
  8. TEDUGLUTIDE [Suspect]
     Active Substance: TEDUGLUTIDE
     Indication: SHORT-BOWEL SYNDROME
     Dosage: 3.6 MILLIGRAM (0.05 MILLIGRAM/KILOGRAM), 1X/DAY:QD
     Route: 065
     Dates: start: 20171206

REACTIONS (4)
  - Colitis [Not Recovered/Not Resolved]
  - Stoma complication [Recovered/Resolved]
  - Stoma complication [Recovered/Resolved]
  - Gastrointestinal stoma complication [Recovered/Resolved]

NARRATIVE: CASE EVENT DATE: 20180107
